FAERS Safety Report 4380197-2 (Version None)
Quarter: 2004Q2

REPORT INFORMATION
  Report Type: 
  Country: None (occurrence: None)
  Receive Date: 20040601
  Receipt Date: 20040126
  Transmission Date: 20050107
  Serious: No
  Sender: FDA-Public Use
  Company Number: WAES 0311USA00873

PATIENT
  Sex: Female
  Weight: 69.4003 kg

DRUGS (5)
  1. ZETIA [Suspect]
     Indication: HYPERCHOLESTEROLAEMIA
     Dosage: 10 MG/DAILY/PO
     Route: 048
     Dates: start: 20030909, end: 20031013
  2. ADALAT CC [Concomitant]
  3. HYDRODIURIL [Concomitant]
  4. SYNTHROID [Concomitant]
  5. XALATAN [Concomitant]

REACTIONS (5)
  - BLOOD CHOLESTEROL INCREASED [None]
  - BLOOD TRIGLYCERIDES INCREASED [None]
  - HIGH DENSITY LIPOPROTEIN DECREASED [None]
  - LIVER FUNCTION TEST ABNORMAL [None]
  - THERAPY NON-RESPONDER [None]
